FAERS Safety Report 5406702-2 (Version None)
Quarter: 2007Q3

REPORT INFORMATION
  Report Type: 
  Country: None (occurrence: None)
  Receive Date: 20070807
  Receipt Date: 20070727
  Transmission Date: 20080115
  Serious: Yes (Congenital Anomaly)
  Sender: FDA-Public Use
  Company Number: DEWYE774801JUN07

PATIENT

DRUGS (1)
  1. VENLAFAXINE HCL [Suspect]
     Indication: ANXIETY DISORDER
     Dates: start: 20020901

REACTIONS (3)
  - CONGENITAL CENTRAL NERVOUS SYSTEM ANOMALY [None]
  - DRUG EXPOSURE DURING PREGNANCY [None]
  - KYPHOSIS CONGENITAL [None]
